FAERS Safety Report 13674063 (Version 1)
Quarter: 2017Q2

REPORT INFORMATION
  Report Type: Spontaneous
  Country: US (occurrence: US)
  Receive Date: 20170620
  Receipt Date: 20170620
  Transmission Date: 20170830
  Serious: Yes (Life-Threatening, Disabling, Other)
  Sender: FDA-Public Use
  Company Number: None

PATIENT
  Sex: Female
  Weight: 76.5 kg

DRUGS (7)
  1. CLONAZEPAM. [Suspect]
     Active Substance: CLONAZEPAM
     Indication: ANXIETY
  2. MULTI-VITAMIN [Concomitant]
     Active Substance: .ALPHA.-TOCOPHEROL ACETATE, DL-\ASCORBIC ACID\CYANOCOBALAMIN\FLUORIDE ION\FOLIC ACID\NIACIN\PYRIDOXINE\RIBOFLAVIN\THIAMINE\VITAMIN A\VITAMIN D
  3. OMEGA 3 [Concomitant]
     Active Substance: OMEGA-3 FATTY ACIDS
  4. ESTROGEN PATCH [Concomitant]
     Active Substance: ESTRADIOL
  5. CLONAZEPAM. [Suspect]
     Active Substance: CLONAZEPAM
     Indication: PANIC ATTACK
  6. LORAZEPAM. [Suspect]
     Active Substance: LORAZEPAM
  7. EFFEXOR [Concomitant]
     Active Substance: VENLAFAXINE HYDROCHLORIDE

REACTIONS (16)
  - Hyperacusis [None]
  - Syncope [None]
  - Withdrawal syndrome [None]
  - Gait disturbance [None]
  - Anxiety [None]
  - Insomnia [None]
  - Muscle spasms [None]
  - Tinnitus [None]
  - Neuralgia [None]
  - Panic reaction [None]
  - Depression [None]
  - Dizziness [None]
  - Hallucination [None]
  - Feeding disorder [None]
  - Paraesthesia [None]
  - Seizure [None]
